FAERS Safety Report 8221712-8 (Version None)
Quarter: 2012Q1

REPORT INFORMATION
  Report Type: 
  Country: None (occurrence: None)
  Receive Date: 20120320
  Receipt Date: 20120314
  Transmission Date: 20120608
  Serious: No
  Sender: FDA-Public Use
  Company Number: US-PFIZER INC-2012068134

PATIENT
  Sex: Male
  Weight: 83.9 kg

DRUGS (8)
  1. DILANTIN-125 [Suspect]
     Dosage: MORNING DOSE WAS REDUCED TO 130 MG
     Route: 048
     Dates: start: 20100101
  2. SELENIUM/TOCOPHEROL [Concomitant]
     Dosage: ^AT 400 IU/50 MCG^ TWO TIMES A DAY
  3. LECITHIN [Concomitant]
     Dosage: UNKNOWN DOSE TWO TIMES A DAY
  4. DILANTIN-125 [Suspect]
     Dosage: 230 MG IN THE MORNING AND 200 MG AT NIGHT
     Route: 048
     Dates: start: 20100101, end: 20100101
  5. CALCIUM [Concomitant]
     Dosage: 120 MG, DAILY
  6. ZINC [Concomitant]
     Dosage: 15 MG DAILY
  7. DILANTIN-125 [Suspect]
     Dosage: 230 MG, 2X/DAY
     Route: 048
     Dates: start: 20100703, end: 20100101
  8. DILANTIN-125 [Suspect]
     Dosage: MORNING DOSE WAS REDUCED TO 200 MG
     Route: 048
     Dates: start: 20100101, end: 20100101

REACTIONS (4)
  - MUSCULAR WEAKNESS [None]
  - MUSCLE SPASMS [None]
  - ASTHENIA [None]
  - HEADACHE [None]
